FAERS Safety Report 7519824-7 (Version None)
Quarter: 2011Q2

REPORT INFORMATION
  Report Type: 
  Country: None (occurrence: None)
  Receive Date: 20110602
  Receipt Date: 20110531
  Transmission Date: 20111010
  Serious: Yes (Other)
  Sender: FDA-Public Use
  Company Number: US-UCBSA-034316

PATIENT
  Sex: Female
  Weight: 49 kg

DRUGS (3)
  1. CIMZIA [Suspect]
     Indication: CROHN'S DISEASE
     Dosage: INDUCTION DOSE
     Route: 058
     Dates: start: 20081020
  2. CIMZIA [Suspect]
     Route: 058
     Dates: start: 20110201
  3. BCP [Concomitant]

REACTIONS (1)
  - ORAL CANDIDIASIS [None]
